FAERS Safety Report 23794992 (Version 1)
Quarter: 2024Q2

REPORT INFORMATION
  Report Type: Spontaneous
  Country: US (occurrence: US)
  Receive Date: 20240429
  Receipt Date: 20240429
  Transmission Date: 20240716
  Serious: No
  Sender: FDA-Public Use
  Company Number: US-BAUSCH-BL-2024-006577

PATIENT
  Sex: Female

DRUGS (1)
  1. WELLBUTRIN XL [Suspect]
     Active Substance: BUPROPION HYDROCHLORIDE
     Indication: Product used for unknown indication
     Dosage: ABOUT MAY BE 18 TO 19 YEARS
     Route: 065

REACTIONS (3)
  - Withdrawal syndrome [Unknown]
  - Inability to afford medication [Unknown]
  - Insurance issue [Unknown]
